FAERS Safety Report 6422896-4 (Version None)
Quarter: 2009Q4

REPORT INFORMATION
  Report Type: 
  Country: None (occurrence: None)
  Receive Date: 20091102
  Receipt Date: 20091023
  Transmission Date: 20100525
  Serious: No
  Sender: FDA-Public Use
  Company Number: US-ROCHE-664821

PATIENT

DRUGS (1)
  1. TAMIFLU [Suspect]
     Dosage: FREQUENCY: ONCE
     Route: 048
     Dates: start: 20091019

REACTIONS (2)
  - INCORRECT DOSE ADMINISTERED [None]
  - NO ADVERSE EVENT [None]
